FAERS Safety Report 7111368-X (Version None)
Quarter: 2010Q4

REPORT INFORMATION
  Report Type: 
  Country: None (occurrence: None)
  Receive Date: 20101118
  Receipt Date: 20101112
  Transmission Date: 20110411
  Serious: Yes (Life-Threatening)
  Sender: FDA-Public Use
  Company Number: PHHY2010JP77455

PATIENT
  Age: 66 Year
  Sex: Male

DRUGS (6)
  1. DIOVAN [Suspect]
     Indication: HYPERTENSION
     Dosage: 40 MG, DAILY
     Route: 048
  2. FASTIC [Suspect]
     Route: 048
  3. TAKEPRON [Suspect]
     Route: 048
  4. ALLOPURINOL [Suspect]
     Route: 048
  5. DIART [Concomitant]
     Route: 048
  6. ULCERLMIN [Concomitant]

REACTIONS (1)
  - INTERSTITIAL LUNG DISEASE [None]
